FAERS Safety Report 12508064 (Version 1)
Quarter: 2016Q2

REPORT INFORMATION
  Report Type: Spontaneous
  Country: US (occurrence: US)
  Receive Date: 20160629
  Receipt Date: 20160629
  Transmission Date: 20160815
  Serious: Yes (Other)
  Sender: FDA-Public Use
  Company Number: US-ABBVIE-16P-163-1653702-00

PATIENT
  Sex: Female

DRUGS (5)
  1. FISH OIL [Concomitant]
     Active Substance: FISH OIL
     Indication: PRODUCT USED FOR UNKNOWN INDICATION
     Dosage: 3-4 TIMES A WEEK
     Route: 048
  2. VIEKIRA PAK [Suspect]
     Active Substance: DASABUVIR\OMBITASVIR\PARITAPREVIR\RITONAVIR
     Indication: HEPATITIS C
     Route: 048
  3. FORSKOLIN [Concomitant]
     Indication: MUSCLE ATROPHY
  4. FORSKOLIN [Concomitant]
     Indication: BODY FAT DISORDER
     Dosage: 2 A DAY (500MG)
     Route: 048
  5. VITAMIN B12 [Concomitant]
     Active Substance: CYANOCOBALAMIN
     Indication: PRODUCT USED FOR UNKNOWN INDICATION

REACTIONS (9)
  - Respiratory disorder [Unknown]
  - Weight increased [Unknown]
  - Bladder disorder [Recovered/Resolved]
  - Sensation of foreign body [Unknown]
  - Hyperphagia [Unknown]
  - Female sterilisation [Unknown]
  - Anxiety [Recovering/Resolving]
  - Irritable bowel syndrome [Unknown]
  - Hepatic enzyme abnormal [Unknown]
